FAERS Safety Report 6087152-5 (Version None)
Quarter: 2009Q1

REPORT INFORMATION
  Report Type: 
  Country: None (occurrence: None)
  Receive Date: 20090223
  Receipt Date: 20090213
  Transmission Date: 20090719
  Serious: Yes (Other)
  Sender: FDA-Public Use
  Company Number: ES-ABBOTT-09P-144-0557274-00

PATIENT
  Age: 77 Year
  Sex: Female

DRUGS (1)
  1. CISATRACURIUM [Suspect]
     Indication: INDUCTION OF ANAESTHESIA
     Route: 042

REACTIONS (4)
  - ACUTE CORONARY SYNDROME [None]
  - ANAPHYLACTIC REACTION [None]
  - ARTERIOSPASM CORONARY [None]
  - ELECTROCARDIOGRAM ST SEGMENT ELEVATION [None]
